FAERS Safety Report 16680152 (Version 3)
Quarter: 2019Q4

REPORT INFORMATION
  Report Type: Spontaneous
  Country: US (occurrence: US)
  Receive Date: 20190807
  Receipt Date: 20191115
  Transmission Date: 20200122
  Serious: Yes (Hospitalization, Other)
  Sender: FDA-Public Use
  Company Number: US-PFIZER INC-2019335446

PATIENT
  Age: 54 Year
  Sex: Female
  Weight: 91 kg

DRUGS (5)
  1. CELEBREX [Suspect]
     Active Substance: CELECOXIB
     Indication: BACK DISORDER
  2. FLECTOR [Concomitant]
     Active Substance: DICLOFENAC EPOLAMINE
     Dosage: UNK
     Dates: start: 2007
  3. CELEBREX [Suspect]
     Active Substance: CELECOXIB
     Indication: BACK PAIN
     Dosage: 100 MG, 2X/DAY (100 MG IN THE MORNINGS AND 100 MG AT NIGHT)
     Route: 048
     Dates: start: 2010, end: 2019
  4. CELEBREX [Suspect]
     Active Substance: CELECOXIB
     Indication: ARTHROPATHY
     Dosage: 200 MG, 1X/DAY (EVERY NIGHT)
     Route: 048
     Dates: start: 2019, end: 2019
  5. HYDROCODONE [Concomitant]
     Active Substance: HYDROCODONE
     Dosage: UNK

REACTIONS (5)
  - Chronic kidney disease [Not Recovered/Not Resolved]
  - Hypertension [Unknown]
  - Depression [Unknown]
  - Anxiety [Unknown]
  - Arthropathy [Not Recovered/Not Resolved]

NARRATIVE: CASE EVENT DATE: 2015
